FAERS Safety Report 13660133 (Version 4)
Quarter: 2022Q3

REPORT INFORMATION
  Report Type: Report from Study
  Country: AU (occurrence: AU)
  Receive Date: 20170616
  Receipt Date: 20220902
  Transmission Date: 20221026
  Serious: Yes (Hospitalization, Other)
  Sender: FDA-Public Use
  Company Number: PHHO2017AU008187

PATIENT
  Age: 46 Year
  Sex: Female
  Weight: 78.4 kg

DRUGS (21)
  1. ASCIMINIB [Suspect]
     Active Substance: ASCIMINIB
     Indication: Chronic myeloid leukaemia
     Dosage: 80 MG, QD
     Route: 048
     Dates: start: 20161006
  2. ASCIMINIB [Suspect]
     Active Substance: ASCIMINIB
     Indication: Acute lymphocytic leukaemia
  3. ICLUSIG [Suspect]
     Active Substance: PONATINIB
     Indication: Chronic myeloid leukaemia
     Dosage: 45 MG, QD
     Route: 065
     Dates: start: 20160301, end: 20160924
  4. NALOXONE HYDROCHLORIDE\OXYCODONE HYDROCHLORIDE [Concomitant]
     Active Substance: NALOXONE HYDROCHLORIDE\OXYCODONE HYDROCHLORIDE
     Indication: Bone pain
     Dosage: 40/20, BID
     Route: 065
     Dates: start: 20161213
  5. NALOXONE HYDROCHLORIDE\OXYCODONE HYDROCHLORIDE [Concomitant]
     Active Substance: NALOXONE HYDROCHLORIDE\OXYCODONE HYDROCHLORIDE
     Indication: Headache
  6. NALOXONE HYDROCHLORIDE\OXYCODONE HYDROCHLORIDE [Concomitant]
     Active Substance: NALOXONE HYDROCHLORIDE\OXYCODONE HYDROCHLORIDE
     Indication: Osteonecrosis
  7. IBUPROFEN [Concomitant]
     Active Substance: IBUPROFEN
     Indication: Headache
     Dosage: 200 MG, (TDS) PRN
     Route: 065
     Dates: end: 20170516
  8. ACETAMINOPHEN [Concomitant]
     Active Substance: ACETAMINOPHEN
     Indication: Bone pain
     Dosage: 1 G, QID, PRN
     Route: 065
  9. ACETAMINOPHEN [Concomitant]
     Active Substance: ACETAMINOPHEN
     Indication: Headache
  10. TAPENTADOL [Concomitant]
     Active Substance: TAPENTADOL
     Indication: Tendon disorder
     Dosage: 250 MG, BID
     Route: 065
     Dates: start: 20180326, end: 20180719
  11. TAPENTADOL [Concomitant]
     Active Substance: TAPENTADOL
     Indication: Joint injury
  12. PANADOL [Concomitant]
     Active Substance: ACETAMINOPHEN
     Indication: Bone pain
     Dosage: 665 MG, TID (TDS)
     Route: 048
     Dates: start: 20171009
  13. PANADOL [Concomitant]
     Active Substance: ACETAMINOPHEN
     Indication: Tendon disorder
  14. PANADOL [Concomitant]
     Active Substance: ACETAMINOPHEN
     Indication: Joint injury
  15. OXYCODONE [Concomitant]
     Active Substance: OXYCODONE
     Indication: Bone pain
     Dosage: 10 MG, PRN
     Route: 048
     Dates: start: 20171009
  16. OXYCODONE [Concomitant]
     Active Substance: OXYCODONE
     Indication: Tendon disorder
  17. OXYCODONE [Concomitant]
     Active Substance: OXYCODONE
     Indication: Joint injury
  18. PREGABALIN [Concomitant]
     Active Substance: PREGABALIN
     Indication: Tendon disorder
     Dosage: 75 MG, BID
     Route: 048
     Dates: start: 20180507, end: 20180719
  19. PREGABALIN [Concomitant]
     Active Substance: PREGABALIN
     Indication: Joint injury
     Dosage: UNK
     Route: 048
     Dates: start: 20180724
  20. SERTRALINE [Concomitant]
     Active Substance: SERTRALINE HYDROCHLORIDE
     Indication: Anxiety
     Dosage: 50 MG, QD
     Route: 048
     Dates: start: 20170221, end: 20180719
  21. SERTRALINE [Concomitant]
     Active Substance: SERTRALINE HYDROCHLORIDE
     Dosage: UNK
     Route: 048
     Dates: start: 20180724

REACTIONS (3)
  - Osteonecrosis [Recovered/Resolved]
  - Bone pain [Not Recovered/Not Resolved]
  - Fibromyalgia [Not Recovered/Not Resolved]

NARRATIVE: CASE EVENT DATE: 20170506
